FAERS Safety Report 6214662-X (Version None)
Quarter: 2009Q2

REPORT INFORMATION
  Report Type: 
  Country: None (occurrence: None)
  Receive Date: 20090604
  Receipt Date: 20090526
  Transmission Date: 20091009
  Serious: Yes (Other)
  Sender: FDA-Public Use
  Company Number: CA-PFIZER INC-2009185472

PATIENT
  Age: 69 Year

DRUGS (1)
  1. CHAMPIX [Suspect]
     Indication: SMOKING CESSATION THERAPY
     Dosage: 1 MG, 1X/DAY
     Dates: start: 20080901

REACTIONS (5)
  - AGGRESSION [None]
  - AGITATION [None]
  - HOSTILITY [None]
  - INSOMNIA [None]
  - MOOD SWINGS [None]
